FAERS Safety Report 7703630-4 (Version None)
Quarter: 2011Q3

REPORT INFORMATION
  Report Type: 
  Country: None (occurrence: None)
  Receive Date: 20110823
  Receipt Date: 20110817
  Transmission Date: 20111222
  Serious: Yes (Death)
  Sender: FDA-Public Use
  Company Number: US-SANOFI-AVENTIS-2011SA015298

PATIENT
  Age: 95 Year
  Sex: Female

DRUGS (5)
  1. ASPIRIN [Concomitant]
     Dates: start: 20101001, end: 20101101
  2. LOVENOX [Concomitant]
     Dates: start: 20101021
  3. OMEPRAZOLE [Suspect]
     Route: 065
     Dates: start: 20101001, end: 20101101
  4. PLAVIX [Suspect]
     Route: 048
     Dates: start: 20101021, end: 20101101
  5. LASIX [Concomitant]
     Dates: start: 20101001

REACTIONS (10)
  - ACUTE RESPIRATORY DISTRESS SYNDROME [None]
  - MYOCARDIAL INFARCTION [None]
  - HYPOTENSION [None]
  - TROPONIN INCREASED [None]
  - CARDIOGENIC SHOCK [None]
  - CEREBROVASCULAR ACCIDENT [None]
  - FEAR [None]
  - HYPOKALAEMIA [None]
  - ASTHENIA [None]
  - PULMONARY OEDEMA [None]
